FAERS Safety Report 9032365 (Version 1)
Quarter: 2013Q1

REPORT INFORMATION
  Report Type: Spontaneous
  Country: AR (occurrence: None)
  Receive Date: 20130108
  Receipt Date: 20130108
  Transmission Date: 20140127
  Serious: Yes (Other)
  Sender: FDA-Public Use
  Company Number: MPS1-1000888

PATIENT
  Age: 18 Month
  Sex: Male

DRUGS (1)
  1. ALDURAZYME (LARONIDASE) CONCENTRATE FOR SOLUTION FOR INFUSION [Suspect]
     Route: 042
     Dates: start: 20121207

REACTIONS (3)
  - Inguinal hernia [None]
  - Ear infection [None]
  - Pyrexia [None]
